FAERS Safety Report 14107520 (Version 3)
Quarter: 2018Q1

REPORT INFORMATION
  Report Type: Spontaneous
  Country: US (occurrence: US)
  Receive Date: 20171019
  Receipt Date: 20180103
  Transmission Date: 20180508
  Serious: Yes (Death)
  Sender: FDA-Public Use
  Company Number: US-PFIZER INC-2017447974

PATIENT
  Age: 34 Year
  Sex: Male

DRUGS (11)
  1. DELORAZEPAM [Suspect]
     Active Substance: DELORAZEPAM
     Dosage: UNK
  2. FLUBROMAZOLAM [Suspect]
     Active Substance: FLUBROMAZOLAM
     Dosage: UNK
  3. AMITRIPTYLINE [Suspect]
     Active Substance: AMITRIPTYLINE
     Dosage: UNK
  4. NORDIAZEPAM [Suspect]
     Active Substance: NORDAZEPAM
     Dosage: UNK
  5. DIAZEPAM. [Suspect]
     Active Substance: DIAZEPAM
     Dosage: UNK
  6. TEMAZEPAM. [Suspect]
     Active Substance: TEMAZEPAM
     Dosage: UNK
  7. METHAMPHETAMINE [Suspect]
     Active Substance: METHAMPHETAMINE
     Dosage: UNK
  8. NORTRIPTYLINE [Suspect]
     Active Substance: NORTRIPTYLINE
     Dosage: UNK
  9. U-47700 [Suspect]
     Active Substance: U-47700
     Dosage: UNK
  10. 3-FLUOROPHENMETRAZINE [Suspect]
     Active Substance: 3-FLUOROPHENMETRAZINE
     Dosage: UNK
  11. AMPHETAMINE [Suspect]
     Active Substance: AMPHETAMINE
     Dosage: UNK

REACTIONS (2)
  - Toxicity to various agents [Fatal]
  - Respiratory depression [Fatal]
